FAERS Safety Report 21183539 (Version 2)
Quarter: 2022Q4

REPORT INFORMATION
  Report Type: Spontaneous
  Country: FR (occurrence: FR)
  Receive Date: 20220808
  Receipt Date: 20221216
  Transmission Date: 20230113
  Serious: Yes (Other)
  Sender: FDA-Public Use
  Company Number: None

PATIENT
  Age: 71 Year
  Sex: Male

DRUGS (4)
  1. ESOMEPRAZOLE [Suspect]
     Active Substance: ESOMEPRAZOLE
     Indication: Gastrooesophageal reflux disease
     Dosage: UNIT DOSE: 40 MG, FREQUENCY TIME-1 DAY
     Dates: start: 20220621
  2. CAPECITABINE [Suspect]
     Active Substance: CAPECITABINE
     Indication: Colorectal cancer
     Dosage: UNIT DOSE: 3600 MG, FREQUENCY TIME-1 DAY, DURATION-12 DAYS
     Dates: start: 20220621, end: 20220703
  3. BEVACIZUMAB [Suspect]
     Active Substance: BEVACIZUMAB
     Indication: Colorectal cancer
     Dosage: ((MAMMAL/HAMSTER/CHO CELLS)), UNIT DOSE: 587.5 MG, FREQUENCY TIME-1 TOTAL, DURATION-1 DAYS
     Dates: start: 20220620, end: 20220620
  4. ONDANSETRON [Concomitant]
     Active Substance: ONDANSETRON
     Indication: Product used for unknown indication

REACTIONS (1)
  - Dermatitis bullous [Not Recovered/Not Resolved]

NARRATIVE: CASE EVENT DATE: 20220625
